FAERS Safety Report 6992457-7 (Version None)
Quarter: 2010Q3

REPORT INFORMATION
  Report Type: 
  Country: None (occurrence: None)
  Receive Date: 20100917
  Receipt Date: 20100825
  Transmission Date: 20110219
  Serious: Yes (Other)
  Sender: FDA-Public Use
  Company Number: PHHY2010US56608

PATIENT
  Sex: Female

DRUGS (10)
  1. TEKTURNA [Suspect]
     Dosage: 150 MG, UNK
  2. BENAZEPRIL HYDROCHLORIDE [Suspect]
  3. ENALAPRIL/HCT [Suspect]
  4. LISINOPRIL [Suspect]
  5. METFORMIN [Concomitant]
  6. XANAX [Concomitant]
  7. SYNTHROID [Concomitant]
     Dosage: 75 MG, QD
  8. ASPIRIN [Concomitant]
  9. DIOVAN [Concomitant]
  10. CYPONER [Concomitant]

REACTIONS (7)
  - ANGINA PECTORIS [None]
  - COUGH [None]
  - JOINT SWELLING [None]
  - MUSCLE SPASMS [None]
  - PAIN IN EXTREMITY [None]
  - SWELLING FACE [None]
  - WRONG TECHNIQUE IN DRUG USAGE PROCESS [None]
